FAERS Safety Report 5087447-8 (Version None)
Quarter: 2006Q3

REPORT INFORMATION
  Report Type: 
  Country: None (occurrence: None)
  Receive Date: 20060727
  Receipt Date: 20060406
  Transmission Date: 20061208
  Serious: Yes (Other)
  Sender: FDA-Public Use
  Company Number: 2006059367

PATIENT
  Age: 81 Year
  Sex: Male
  Weight: 77.1115 kg

DRUGS (4)
  1. LYRICA [Suspect]
     Indication: POLYNEUROPATHY
     Dosage: 150 MG (75 MG, 2 IN 1 D)
     Dates: start: 20060405
  2. TAMSULOSIN HCL [Concomitant]
  3. CELEBREX [Concomitant]
  4. MULTIVITAMIN [Concomitant]

REACTIONS (5)
  - CONSTIPATION [None]
  - DIZZINESS [None]
  - PARAESTHESIA [None]
  - SEXUAL DYSFUNCTION [None]
  - SOMNOLENCE [None]
